FAERS Safety Report 6029598-7 (Version None)
Quarter: 2009Q1

REPORT INFORMATION
  Report Type: 
  Country: None (occurrence: None)
  Receive Date: 20090107
  Receipt Date: 20081227
  Transmission Date: 20090719
  Serious: Yes (Other)
  Sender: FDA-Public Use
  Company Number: US-JNJFOC-20081206899

PATIENT
  Sex: Male
  Weight: 72.58 kg

DRUGS (3)
  1. REMICADE [Suspect]
     Dosage: SECOND INFUSION AFTER 3 DAYS
     Route: 042
  2. REMICADE [Suspect]
     Indication: CROHN'S DISEASE
     Dosage: 1ST INFUSION
     Route: 042
  3. COUMADIN [Concomitant]
     Indication: CARDIAC DISORDER

REACTIONS (3)
  - FEELING COLD [None]
  - INFUSION RELATED REACTION [None]
  - TREMOR [None]
